FAERS Safety Report 12763246 (Version 1)
Quarter: 2016Q3

REPORT INFORMATION
  Report Type: Spontaneous
  Country: US (occurrence: US)
  Receive Date: 20160919
  Receipt Date: 20160919
  Transmission Date: 20161109
  Serious: Yes (Hospitalization)
  Sender: FDA-Public Use
  Company Number: None

PATIENT
  Sex: Male
  Weight: 73.48 kg

DRUGS (18)
  1. ASPIRIN. [Concomitant]
     Active Substance: ASPIRIN
  2. VITAMIN B12 [Concomitant]
     Active Substance: CYANOCOBALAMIN
  3. MIRALAX [Concomitant]
     Active Substance: POLYETHYLENE GLYCOL 3350
  4. OMEPRAZOLE. [Concomitant]
     Active Substance: OMEPRAZOLE
  5. SYNTHROID [Concomitant]
     Active Substance: LEVOTHYROXINE SODIUM
  6. EPLERNONE [Concomitant]
  7. METOPROLOL. [Concomitant]
     Active Substance: METOPROLOL
  8. ONDANSETRON [Suspect]
     Active Substance: ONDANSETRON
     Indication: ABDOMINAL DISCOMFORT
     Dosage: ONDANSETRON - BY MOUTH - 1 EVERY 8 HOURS FOR 5 DAYS
     Route: 048
     Dates: start: 20160811, end: 20160813
  9. FISH OIL [Concomitant]
     Active Substance: FISH OIL
  10. INSULIN [Concomitant]
     Active Substance: INSULIN NOS
  11. FAMOTIDINE. [Concomitant]
     Active Substance: FAMOTIDINE
  12. NITROGLYCERIN. [Concomitant]
     Active Substance: NITROGLYCERIN
  13. VITAMIN D3 [Concomitant]
     Active Substance: CHOLECALCIFEROL
  14. ATORVASTATIN [Concomitant]
     Active Substance: ATORVASTATIN
  15. LASIX [Suspect]
     Active Substance: FUROSEMIDE
  16. QUANFACINE ER 3MG [Concomitant]
     Active Substance: GUANFACINE
  17. ISOSORBIDE MONONITRATE. [Concomitant]
     Active Substance: ISOSORBIDE MONONITRATE
  18. LOSARTAN. [Concomitant]
     Active Substance: LOSARTAN

REACTIONS (3)
  - Urinary retention [None]
  - Intestinal mass [None]
  - Constipation [None]
